FAERS Safety Report 17583481 (Version 2)
Quarter: 2020Q1

REPORT INFORMATION
  Report Type: Report from Study
  Country: US (occurrence: US)
  Receive Date: 20200326
  Receipt Date: 20200330
  Transmission Date: 20200409
  Serious: Yes (Hospitalization)
  Sender: FDA-Public Use
  Company Number: US-ROCHE-2568868

PATIENT
  Age: 55 Year
  Sex: Female
  Weight: 68.3 kg

DRUGS (17)
  1. CARBOPLATIN. [Suspect]
     Active Substance: CARBOPLATIN
     Indication: TRIPLE NEGATIVE BREAST CANCER
     Dosage: DATE OF THE LAST DOSE PRIOR TO THE EVENT: 06/MAR/2020
     Route: 042
     Dates: start: 20200214
  2. ONDANSETRON [Concomitant]
     Active Substance: ONDANSETRON
  3. OLANZAPINE. [Concomitant]
     Active Substance: OLANZAPINE
  4. OLANZAPINE. [Concomitant]
     Active Substance: OLANZAPINE
  5. XARELTO [Concomitant]
     Active Substance: RIVAROXABAN
  6. ATIVAN [Concomitant]
     Active Substance: LORAZEPAM
  7. OXYCODONE [Concomitant]
     Active Substance: OXYCODONE
  8. LEVOTHYROXINE. [Concomitant]
     Active Substance: LEVOTHYROXINE
  9. CHOLECALCIFEROL [Concomitant]
     Active Substance: CHOLECALCIFEROL
  10. DIPHENHYDRAMINE. [Concomitant]
     Active Substance: DIPHENHYDRAMINE
  11. FENTANYL. [Concomitant]
     Active Substance: FENTANYL
  12. RIVAROXABAN [Concomitant]
     Active Substance: RIVAROXABAN
  13. ATEZOLIZUMAB. [Suspect]
     Active Substance: ATEZOLIZUMAB
     Indication: TRIPLE NEGATIVE BREAST CANCER
     Route: 042
  14. VANCOMYCIN [Concomitant]
     Active Substance: VANCOMYCIN
  15. POTASSIUM PHOSPHATE [POTASSIUM PHOSPHATE DIBASIC;POTASSIUM PHOSPHATE M [Concomitant]
  16. PROCHLORPERAZINE. [Concomitant]
     Active Substance: PROCHLORPERAZINE
  17. ZYRTEC [Concomitant]
     Active Substance: CETIRIZINE HYDROCHLORIDE

REACTIONS (2)
  - Malaise [Not Recovered/Not Resolved]
  - Pyrexia [Not Recovered/Not Resolved]

NARRATIVE: CASE EVENT DATE: 20200308
